FAERS Safety Report 4713594-3 (Version None)
Quarter: 2005Q3

REPORT INFORMATION
  Report Type: 
  Country: None (occurrence: None)
  Receive Date: 20050712
  Receipt Date: 20050628
  Transmission Date: 20060218
  Serious: Yes (Other)
  Sender: FDA-Public Use
  Company Number: 2005-00741

PATIENT
  Age: 47 Year
  Sex: Male

DRUGS (1)
  1. IMMUCYST [Suspect]
     Indication: URINARY BLADDER POLYP
     Dosage: I.VES.,BLADDER

REACTIONS (2)
  - DIVERTICULUM [None]
  - GRANULOMATOUS LIVER DISEASE [None]
